FAERS Safety Report 9004604 (Version 1)
Quarter: 2012Q4

REPORT INFORMATION
  Report Type: Spontaneous
  Country: US (occurrence: None)
  Receive Date: 20121226
  Receipt Date: 20121226
  Transmission Date: 20130627
  Serious: Yes (Other)
  Sender: FDA-Public Use
  Company Number: US-1195828

PATIENT

DRUGS (1)
  1. NATACYN [Suspect]
     Route: 047

REACTIONS (1)
  - Drug ineffective [None]
